FAERS Safety Report 11099579 (Version 3)
Quarter: 2015Q4

REPORT INFORMATION
  Report Type: Spontaneous
  Country: US (occurrence: US)
  Receive Date: 20150508
  Receipt Date: 20151109
  Transmission Date: 20160304
  Serious: Yes (Hospitalization, Other)
  Sender: FDA-Public Use
  Company Number: US-SUN PHARMACEUTICAL INDUSTRIES LTD-2015US-96117

PATIENT
  Age: 56 Year
  Sex: Male

DRUGS (2)
  1. LISINOPRIL. [Concomitant]
     Active Substance: LISINOPRIL
  2. METFORMIN [Suspect]
     Active Substance: METFORMIN HYDROCHLORIDE
     Indication: TYPE 2 DIABETES MELLITUS
     Dosage: 500 MG, TWICE DAILY
     Route: 065

REACTIONS (6)
  - Drug administration error [Unknown]
  - Syncope [Unknown]
  - Lactic acidosis [Recovered/Resolved]
  - Mental status changes [Unknown]
  - Drug level decreased [Recovered/Resolved]
  - Respiratory failure [Unknown]
